FAERS Safety Report 5444794-5 (Version None)
Quarter: 2007Q3

REPORT INFORMATION
  Report Type: 
  Country: None (occurrence: None)
  Receive Date: 20070906
  Receipt Date: 20070319
  Transmission Date: 20080115
  Serious: No
  Sender: FDA-Public Use
  Company Number: A0643686A

PATIENT
  Age: 67 Year
  Sex: Female

DRUGS (6)
  1. REQUIP [Suspect]
     Indication: PARKINSON'S DISEASE
     Route: 048
     Dates: start: 20040101
  2. MELOXICAM [Suspect]
     Indication: ARTHRITIS
     Dosage: 15MG PER DAY
     Route: 048
     Dates: start: 20070201
  3. TRAMADOL HCL [Suspect]
     Indication: PAIN
     Dosage: 1TAB PER DAY
     Route: 048
     Dates: start: 20070201
  4. CARDIZEM [Concomitant]
  5. CARBIDOPA AND LEVODOPA [Concomitant]
  6. CYMBALTA [Concomitant]

REACTIONS (2)
  - SOMNAMBULISM [None]
  - SOMNOLENCE [None]
